FAERS Safety Report 17114993 (Version 1)
Quarter: 2019Q4

REPORT INFORMATION
  Report Type: Spontaneous
  Country: US (occurrence: US)
  Receive Date: 20191112
  Receipt Date: 20191112
  Transmission Date: 20200122
  Serious: Yes (Hospitalization, Other)
  Sender: FDA-Public Use
  Company Number: None

PATIENT
  Age: 46 Year
  Sex: Female
  Weight: 65.77 kg

DRUGS (1)
  1. ALPRAZOLAM TABLETS .5MG [Suspect]
     Active Substance: ALPRAZOLAM
     Indication: SLEEP DISORDER
     Dosage: .5 PER NIGHT
     Dates: start: 20190101, end: 20191031

REACTIONS (4)
  - Pyrexia [None]
  - Rash [None]
  - Biopsy thyroid gland [None]
  - Palpitations [None]
